FAERS Safety Report 13911470 (Version 1)
Quarter: 2017Q3

REPORT INFORMATION
  Report Type: Spontaneous
  Country: US (occurrence: US)
  Receive Date: 20170828
  Receipt Date: 20170828
  Transmission Date: 20171127
  Serious: No
  Sender: FDA-Public Use
  Company Number: US-ROCHE-1142101

PATIENT
  Sex: Male
  Weight: 85.5 kg

DRUGS (6)
  1. NUTROPIN AQ [Suspect]
     Active Substance: SOMATROPIN
     Indication: GROWTH HORMONE DEFICIENCY
     Route: 058
  2. NUTROPIN AQ [Suspect]
     Active Substance: SOMATROPIN
     Route: 058
  3. HEPARIN [Concomitant]
     Active Substance: HEPARIN SODIUM
  4. VASOTEC [Concomitant]
     Active Substance: ENALAPRIL MALEATE
  5. CIPRO [Concomitant]
     Active Substance: CIPROFLOXACIN HYDROCHLORIDE
  6. INSULIN [Concomitant]
     Active Substance: INSULIN NOS
     Dosage: PUSH
     Route: 042

REACTIONS (3)
  - Weight increased [Unknown]
  - Pain in extremity [Unknown]
  - Osteopenia [Unknown]
